FAERS Safety Report 17901505 (Version 1)
Quarter: 2020Q2

REPORT INFORMATION
  Report Type: Report from Study
  Country: CA (occurrence: CA)
  Receive Date: 20200616
  Receipt Date: 20200616
  Transmission Date: 20200714
  Serious: Yes (Hospitalization, Other)
  Sender: FDA-Public Use
  Company Number: CA-PFIZER INC-2020227036

PATIENT
  Age: 61 Year
  Sex: Male

DRUGS (9)
  1. SANDOSTATIN [Suspect]
     Active Substance: OCTREOTIDE ACETATE
     Indication: PANCREATIC NEUROENDOCRINE TUMOUR METASTATIC
     Dosage: 30 MG, MONTHLY
     Route: 030
  2. MORPHINE SULFATE. [Suspect]
     Active Substance: MORPHINE SULFATE
     Dosage: UNK
     Route: 065
  3. POTASSIUM CHLORIDE. [Concomitant]
     Active Substance: POTASSIUM CHLORIDE
     Dosage: UNK
  4. TEMODAL [Concomitant]
     Active Substance: TEMOZOLOMIDE
     Dosage: UNK
  5. SPIRONOLACTONE. [Concomitant]
     Active Substance: SPIRONOLACTONE
     Dosage: UNK
  6. XELODA [Suspect]
     Active Substance: CAPECITABINE
     Dosage: UNK
  7. CAPECITABINE. [Concomitant]
     Active Substance: CAPECITABINE
     Dosage: UNK
  8. SANDOSTATIN [Suspect]
     Active Substance: OCTREOTIDE ACETATE
     Indication: CARCINOID SYNDROME
  9. TERBINAFINE. [Suspect]
     Active Substance: TERBINAFINE
     Dosage: UNK
     Route: 065

REACTIONS (36)
  - Drug hypersensitivity [Recovering/Resolving]
  - Abdominal pain [Recovering/Resolving]
  - Erythema [Recovering/Resolving]
  - Eye swelling [Recovering/Resolving]
  - Hepatic lesion [Recovering/Resolving]
  - Malignant neoplasm progression [Recovering/Resolving]
  - Faecal volume decreased [Recovering/Resolving]
  - Abdominal distension [Recovering/Resolving]
  - Blood pressure increased [Recovering/Resolving]
  - Dysphagia [Recovering/Resolving]
  - Feeling cold [Recovering/Resolving]
  - Needle issue [Recovering/Resolving]
  - Diaphragmatic spasm [Recovering/Resolving]
  - Dyspnoea [Recovering/Resolving]
  - Gait disturbance [Recovering/Resolving]
  - Rash [Recovering/Resolving]
  - Swelling of eyelid [Recovering/Resolving]
  - Vomiting [Recovering/Resolving]
  - Chest pain [Recovering/Resolving]
  - Pain [Recovering/Resolving]
  - Periorbital oedema [Recovering/Resolving]
  - Peripheral swelling [Recovering/Resolving]
  - Bile duct obstruction [Recovering/Resolving]
  - Malaise [Recovering/Resolving]
  - Skin warm [Recovering/Resolving]
  - Nausea [Recovering/Resolving]
  - Chills [Recovering/Resolving]
  - Cushing^s syndrome [Recovering/Resolving]
  - Discomfort [Recovering/Resolving]
  - Fatigue [Recovering/Resolving]
  - Nephrolithiasis [Recovering/Resolving]
  - Pyrexia [Recovering/Resolving]
  - Rosacea [Recovering/Resolving]
  - Device occlusion [Recovering/Resolving]
  - Swelling face [Recovering/Resolving]
  - Weight decreased [Recovering/Resolving]
